FAERS Safety Report 8564286-4 (Version None)
Quarter: 2012Q3

REPORT INFORMATION
  Report Type: 
  Country: None (occurrence: None)
  Receive Date: 20120803
  Receipt Date: 20120727
  Transmission Date: 20120928
  Serious: Yes (Other)
  Sender: FDA-Public Use
  Company Number: CH-JNJFOC-20120714107

PATIENT
  Age: 46 Year
  Sex: Male

DRUGS (1)
  1. PALIPERIDONE [Suspect]
     Indication: PRODUCT USED FOR UNKNOWN INDICATION
     Dosage: FOR 9 MONTHS
     Route: 030
     Dates: start: 20110101

REACTIONS (1)
  - BLOOD CREATINE PHOSPHOKINASE INCREASED [None]
